FAERS Safety Report 7365009-7 (Version None)
Quarter: 2011Q1

REPORT INFORMATION
  Report Type: 
  Country: None (occurrence: None)
  Receive Date: 20110321
  Receipt Date: 20110310
  Transmission Date: 20110831
  Serious: Yes (Other)
  Sender: FDA-Public Use
  Company Number: US-ASTRAZENECA-2011SE13935

PATIENT
  Age: 74 Year
  Sex: Male

DRUGS (11)
  1. SULFA [Concomitant]
  2. SEROQUEL [Suspect]
     Route: 048
  3. ANTIBIOTICS [Concomitant]
  4. CORTISONE [Concomitant]
  5. SERZONE [Concomitant]
  6. BACTRIM [Concomitant]
  7. REGLAN [Concomitant]
  8. CEPHRADINE [Concomitant]
  9. AUGMENTIN '125' [Concomitant]
  10. PREVACID [Concomitant]
  11. ZOLOFT [Concomitant]

REACTIONS (3)
  - PARALYSIS [None]
  - APHASIA [None]
  - NAUSEA [None]
